FAERS Safety Report 6857461 (Version 3)
Quarter: 2013Q4

REPORT INFORMATION
  Report Type: Spontaneous
  Country: US (occurrence: US)
  Receive Date: 20081217
  Receipt Date: 20131007
  Transmission Date: 20140711
  Serious: No
  Sender: FDA-Public Use
  Company Number: US-ASTRAZENECA-2008UW17774

PATIENT
  Age: 84 Year
  Sex: Female
  Weight: 57.2 kg

DRUGS (10)
  1. CRESTOR [Suspect]
     Indication: BLOOD CHOLESTEROL ABNORMAL
     Route: 048
     Dates: start: 20080101
  2. CRESTOR [Suspect]
     Indication: DYSLIPIDAEMIA
     Route: 048
     Dates: start: 20080101
  3. CRESTOR [Suspect]
     Indication: BLOOD CHOLESTEROL ABNORMAL
     Dosage: 10 MG, EVERY OTHER DAY
     Route: 048
  4. CRESTOR [Suspect]
     Indication: DYSLIPIDAEMIA
     Dosage: 10 MG, EVERY OTHER DAY
     Route: 048
  5. CRESTOR [Suspect]
     Indication: BLOOD CHOLESTEROL ABNORMAL
     Route: 048
     Dates: start: 2010
  6. CRESTOR [Suspect]
     Indication: DYSLIPIDAEMIA
     Route: 048
     Dates: start: 2010
  7. CALCIUM WITH VITAMIN D [Concomitant]
     Indication: SUPPLEMENTATION THERAPY
  8. VITAMIN E [Concomitant]
     Indication: VITAMIN SUPPLEMENTATION
  9. GLUCOSAMINE [Concomitant]
     Indication: SUPPLEMENTATION THERAPY
  10. CENTRUM [Concomitant]
     Indication: VITAMIN SUPPLEMENTATION

REACTIONS (3)
  - Pollakiuria [Unknown]
  - Bradyphrenia [Unknown]
  - Dizziness [Recovered/Resolved]
